FAERS Safety Report 9145308 (Version 1)
Quarter: 2013Q1

REPORT INFORMATION
  Report Type: Spontaneous
  Country: US (occurrence: None)
  Receive Date: 20130226
  Receipt Date: 20130226
  Transmission Date: 20140127
  Serious: No
  Sender: FDA-Public Use
  Company Number: None

PATIENT
  Sex: Male

DRUGS (1)
  1. NUTROPIN AQ 20 MG/2 ML CART. GENENTECH [Suspect]
     Indication: DWARFISM
     Dosage: 1.2 MG QD SQ
     Route: 058
     Dates: start: 2010

REACTIONS (4)
  - Muscle twitching [None]
  - Trismus [None]
  - Dyskinesia [None]
  - Vision blurred [None]
